FAERS Safety Report 22001142 (Version 2)
Quarter: 2023Q2

REPORT INFORMATION
  Report Type: Spontaneous
  Country: US (occurrence: US)
  Receive Date: 20230216
  Receipt Date: 20230511
  Transmission Date: 20230722
  Serious: No
  Sender: FDA-Public Use
  Company Number: US-SA-SAC20230213000095

PATIENT
  Sex: Female

DRUGS (1)
  1. DUPIXENT [Suspect]
     Active Substance: DUPILUMAB
     Dosage: 300 MG, OTHER
     Route: 058

REACTIONS (8)
  - Injection site pain [Unknown]
  - Influenza like illness [Recovered/Resolved]
  - Feeling abnormal [Unknown]
  - Injection site inflammation [Unknown]
  - Injection site rash [Unknown]
  - Intentional dose omission [Unknown]
  - Lack of injection site rotation [Unknown]
  - Injection site pruritus [Unknown]
